FAERS Safety Report 20732554 (Version 1)
Quarter: 2022Q2

REPORT INFORMATION
  Report Type: Spontaneous
  Country: US (occurrence: US)
  Receive Date: 20220420
  Receipt Date: 20220420
  Transmission Date: 20220721
  Serious: No
  Sender: FDA-Public Use
  Company Number: US-PFIZER INC-2019397330

PATIENT
  Age: 65 Year
  Sex: Female

DRUGS (5)
  1. IBRANCE [Suspect]
     Active Substance: PALBOCICLIB
     Dosage: UNK (SHE HAS BEEN ON IBRANCE FOR FOUR YEARS)
  2. IBRANCE [Suspect]
     Active Substance: PALBOCICLIB
     Dosage: 150 MG
  3. IBRANCE [Suspect]
     Active Substance: PALBOCICLIB
     Dosage: 100 MG
  4. IBRANCE [Suspect]
     Active Substance: PALBOCICLIB
     Dosage: 75 MG, CYCLIC, NORMAL DOSING
     Dates: start: 2015
  5. IBRANCE [Suspect]
     Active Substance: PALBOCICLIB
     Dosage: 75 MG, CYCLIC (2 WEEKS ON OF 75MG AND 2 WEEKS OFF)

REACTIONS (2)
  - Off label use [Unknown]
  - Neutrophil count decreased [Unknown]
